FAERS Safety Report 20047129 (Version 2)
Quarter: 2021Q4

REPORT INFORMATION
  Report Type: Other
  Country: NL (occurrence: NL)
  Receive Date: 20211109
  Receipt Date: 20211202
  Transmission Date: 20220303
  Serious: Yes (Death, Other)
  Sender: FDA-Public Use
  Company Number: None

PATIENT

DRUGS (2)
  1. DEXAMETHASONE [Suspect]
     Active Substance: DEXAMETHASONE
     Indication: COVID-19
     Dosage: 10 DAAGSE KUUR,
     Route: 065
     Dates: start: 20210725
  2. TOCILIZUMAB [Concomitant]
     Active Substance: TOCILIZUMAB
     Indication: Product used for unknown indication
     Dosage: TOCILIZUMAB VOOR INFUSIE
     Route: 065

REACTIONS (5)
  - Off label use [Fatal]
  - Bronchopulmonary aspergillosis [Fatal]
  - Cardiac failure [Fatal]
  - Septic shock [Fatal]
  - Renal failure [Fatal]

NARRATIVE: CASE EVENT DATE: 20210814
